FAERS Safety Report 6182263-8 (Version None)
Quarter: 2009Q2

REPORT INFORMATION
  Report Type: 
  Country: None (occurrence: None)
  Receive Date: 20090507
  Receipt Date: 20090501
  Transmission Date: 20091009
  Serious: Yes (Other)
  Sender: FDA-Public Use
  Company Number: US-BIOGENIDEC-2009BI013406

PATIENT
  Age: 42 Year
  Sex: Female

DRUGS (2)
  1. TYSABRI [Suspect]
     Indication: MULTIPLE SCLEROSIS
     Route: 042
     Dates: start: 20080617
  2. SEIZURE MEDICATION NOS [Concomitant]
     Indication: COMPLEX PARTIAL SEIZURES

REACTIONS (4)
  - COMPLEX PARTIAL SEIZURES [None]
  - DRUG RESISTANCE [None]
  - MEMORY IMPAIRMENT [None]
  - OPTIC NEURITIS [None]
